FAERS Safety Report 24963333 (Version 1)
Quarter: 2025Q1

REPORT INFORMATION
  Report Type: Spontaneous
  Country: US (occurrence: US)
  Receive Date: 20250213
  Receipt Date: 20250213
  Transmission Date: 20250409
  Serious: Yes (Other)
  Sender: JOHNSON AND JOHNSON
  Company Number: US-JNJFOC-20250221983

PATIENT
  Age: 70 Year
  Sex: Male

DRUGS (3)
  1. ERLEADA [Suspect]
     Active Substance: APALUTAMIDE
     Indication: Prostate cancer
     Route: 065
     Dates: start: 20241220
  2. ORGOVYX [Interacting]
     Active Substance: RELUGOLIX
     Indication: Prostate cancer
     Route: 048
     Dates: start: 20241123, end: 20241123
  3. ORGOVYX [Interacting]
     Active Substance: RELUGOLIX
     Route: 048
     Dates: start: 20241122, end: 20241122

REACTIONS (4)
  - Renal impairment [Unknown]
  - Sinusitis [Unknown]
  - Drug interaction [Unknown]
  - Rash macular [Unknown]
